FAERS Safety Report 8147868-3 (Version None)
Quarter: 2012Q1

REPORT INFORMATION
  Report Type: 
  Country: None (occurrence: None)
  Receive Date: 20120218
  Receipt Date: 20110323
  Transmission Date: 20120608
  Serious: No
  Sender: FDA-Public Use
  Company Number: US-ALLERGAN-1104178US

PATIENT
  Age: 51 Year
  Sex: Female
  Weight: 58.957 kg

DRUGS (6)
  1. MULTI-VITAMIN [Concomitant]
  2. NUMBING CREAM [Suspect]
     Indication: PREMEDICATION
     Dosage: UNK
     Dates: start: 20110224, end: 20110224
  3. BOTULINUM TOXIN TYPE A [Suspect]
     Indication: SKIN WRINKLING
     Dosage: UNK
     Dates: start: 20110224, end: 20110224
  4. DYSPORT [Suspect]
     Indication: SKIN WRINKLING
     Dosage: UNK
     Dates: start: 20110224, end: 20110224
  5. KRILL OIL [Concomitant]
  6. CALCIUM [Concomitant]
     Dosage: 500 MG, QD

REACTIONS (5)
  - MUSCULAR WEAKNESS [None]
  - FATIGUE [None]
  - INJECTION SITE DISCOMFORT [None]
  - NECK PAIN [None]
  - HEADACHE [None]
